FAERS Safety Report 4587418-1 (Version None)
Quarter: 2005Q1

REPORT INFORMATION
  Report Type: 
  Country: None (occurrence: None)
  Receive Date: 20050218
  Receipt Date: 20050209
  Transmission Date: 20050727
  Serious: Yes (Hospitalization)
  Sender: FDA-Public Use
  Company Number: US-JNJFOC-20050204472

PATIENT
  Sex: Female
  Weight: 53.98 kg

DRUGS (15)
  1. REMICADE [Suspect]
     Route: 042
  2. REMICADE [Suspect]
     Route: 042
  3. REMICADE [Suspect]
     Route: 042
  4. REMICADE [Suspect]
     Route: 042
  5. REMICADE [Suspect]
     Indication: CROHN'S DISEASE
     Route: 042
  6. PURINETHOL [Concomitant]
  7. TPN [Concomitant]
  8. TPN [Concomitant]
  9. TPN [Concomitant]
     Indication: SHORT-BOWEL SYNDROME
  10. PRILOSEC [Concomitant]
  11. COUMADIN [Concomitant]
  12. MEDROL [Concomitant]
     Dosage: DOSE PACK AT TIMES OF INFLIXIMAB INFUSION
  13. OXYCODONE [Concomitant]
  14. NYSTATIN [Concomitant]
     Dosage: SWISH/SWALLOW
  15. ZOFRAN [Concomitant]

REACTIONS (5)
  - BACTERAEMIA [None]
  - CHOLESTASIS [None]
  - HYPOAESTHESIA [None]
  - JAUNDICE [None]
  - LIVER FUNCTION TEST ABNORMAL [None]
